FAERS Safety Report 26119094 (Version 2)
Quarter: 2025Q4

REPORT INFORMATION
  Report Type: Spontaneous
  Country: CN (occurrence: CN)
  Receive Date: 20251204
  Receipt Date: 20251209
  Transmission Date: 20260117
  Serious: Yes (Death, Life-Threatening, Hospitalization)
  Sender: MACLEODS
  Company Number: CN-MACLEODS PHARMA-MAC2025056726

PATIENT

DRUGS (12)
  1. LINEZOLID [Suspect]
     Active Substance: LINEZOLID
     Indication: Pneumonia
     Dosage: 600 MG EVERY 12 HOURS  FOR 14 DAYS
     Route: 065
  2. LINEZOLID [Suspect]
     Active Substance: LINEZOLID
     Indication: Acinetobacter infection
  3. LINEZOLID [Suspect]
     Active Substance: LINEZOLID
     Indication: Corynebacterium infection
  4. LINEZOLID [Suspect]
     Active Substance: LINEZOLID
     Indication: Stenotrophomonas infection
  5. CEFOPERAZONE\SULBACTAM [Concomitant]
     Active Substance: CEFOPERAZONE\SULBACTAM
     Indication: Pneumonia
     Route: 065
  6. CEFOPERAZONE\SULBACTAM [Concomitant]
     Active Substance: CEFOPERAZONE\SULBACTAM
  7. CEFOPERAZONE\SULBACTAM [Concomitant]
     Active Substance: CEFOPERAZONE\SULBACTAM
     Indication: Corynebacterium infection
  8. CEFOPERAZONE\SULBACTAM [Concomitant]
     Active Substance: CEFOPERAZONE\SULBACTAM
     Indication: Stenotrophomonas infection
  9. TIGECYCLINE [Concomitant]
     Active Substance: TIGECYCLINE
     Indication: Pneumonia
     Route: 065
  10. TIGECYCLINE [Concomitant]
     Active Substance: TIGECYCLINE
  11. TIGECYCLINE [Concomitant]
     Active Substance: TIGECYCLINE
     Indication: Corynebacterium infection
  12. TIGECYCLINE [Concomitant]
     Active Substance: TIGECYCLINE
     Indication: Stenotrophomonas infection

REACTIONS (3)
  - Death [Fatal]
  - Mitochondrial toxicity [Not Recovered/Not Resolved]
  - Hyperlactacidaemia [Not Recovered/Not Resolved]
